FAERS Safety Report 21146834 (Version 4)
Quarter: 2023Q1

REPORT INFORMATION
  Report Type: Spontaneous
  Country: US (occurrence: US)
  Receive Date: 20220729
  Receipt Date: 20230201
  Transmission Date: 20230417
  Serious: Yes (Other)
  Sender: FDA-Public Use
  Company Number: US-NOVARTISTESTPH-NVSC2022US171367

PATIENT
  Sex: Male

DRUGS (2)
  1. XIIDRA [Suspect]
     Active Substance: LIFITEGRAST
     Indication: Product used for unknown indication
     Dosage: UNK UNK, BID (5 MONTHS)
     Route: 065
  2. XIIDRA [Suspect]
     Active Substance: LIFITEGRAST
     Dosage: UNK UNK, BID (6 MONTHS)
     Route: 065

REACTIONS (2)
  - Blindness transient [Unknown]
  - Dry eye [Unknown]
